FAERS Safety Report 19475896 (Version 1)
Quarter: 2021Q2

REPORT INFORMATION
  Report Type: Spontaneous
  Country: US (occurrence: US)
  Receive Date: 20210630
  Receipt Date: 20210630
  Transmission Date: 20210717
  Serious: No
  Sender: FDA-Public Use
  Company Number: US-TEVA-2021-US-1928007

PATIENT
  Sex: Male
  Weight: 77.1 kg

DRUGS (2)
  1. ATORVASTATIN [Concomitant]
     Active Substance: ATORVASTATIN
  2. FEXOFENADINE [Suspect]
     Active Substance: FEXOFENADINE HYDROCHLORIDE
     Indication: HYPERSENSITIVITY
     Route: 048
     Dates: start: 20210611, end: 20210613

REACTIONS (2)
  - Feeling abnormal [Unknown]
  - Sluggishness [Unknown]

NARRATIVE: CASE EVENT DATE: 20210613
